FAERS Safety Report 4710143-0 (Version None)
Quarter: 2005Q2

REPORT INFORMATION
  Report Type: 
  Country: None (occurrence: None)
  Receive Date: 20050629
  Receipt Date: 20050309
  Transmission Date: 20051028
  Serious: No
  Sender: FDA-Public Use
  Company Number: 05P-163-0293314-00

PATIENT
  Age: 80 Year
  Sex: Female
  Weight: 54.4316 kg

DRUGS (6)
  1. HUMIRA [Suspect]
     Indication: RHEUMATOID ARTHRITIS
     Dosage: 40 MG, 1 IN 1 WK, SUBCUTANEOUS
     Route: 058
     Dates: start: 20050223
  2. PROPRANOLOL [Concomitant]
  3. RABEPRAZOLE SODIUM [Concomitant]
  4. ALENDRONATE SODIUM [Concomitant]
  5. PREDNISONE TAB [Concomitant]
  6. CELECOXIB [Concomitant]

REACTIONS (1)
  - INJECTION SITE HAEMORRHAGE [None]
